FAERS Safety Report 24309866 (Version 1)
Quarter: 2024Q3

REPORT INFORMATION
  Report Type: Spontaneous
  Country: FR (occurrence: FR)
  Receive Date: 20240912
  Receipt Date: 20240912
  Transmission Date: 20241016
  Serious: Yes (Other)
  Sender: AUROBINDO
  Company Number: FR-MLMSERVICE-20170808-0835269-1

PATIENT
  Age: 22 Year
  Sex: Female

DRUGS (1)
  1. MYCOPHENOLATE MOFETIL [Suspect]
     Active Substance: MYCOPHENOLATE MOFETIL
     Indication: Chronic cutaneous lupus erythematosus
     Dosage: 2 GRAM, ONCE A DAY
     Route: 065

REACTIONS (4)
  - Herpes zoster [Unknown]
  - Chronic cutaneous lupus erythematosus [Recovering/Resolving]
  - Disease recurrence [Recovering/Resolving]
  - Product use in unapproved indication [Unknown]
